FAERS Safety Report 9498287 (Version 2)
Quarter: 2013Q4

REPORT INFORMATION
  Report Type: Spontaneous
  Country: FR (occurrence: FR)
  Receive Date: 20130904
  Receipt Date: 20131011
  Transmission Date: 20140711
  Serious: Yes (Hospitalization)
  Sender: FDA-Public Use
  Company Number: FR-PFIZER INC-2013251596

PATIENT
  Age: 65 Year
  Sex: Female

DRUGS (5)
  1. LYRICA [Suspect]
     Indication: NEURALGIA
     Dosage: 25 MG, 2X/DAY (1 TABLET IN THE MORNING AND 1 IN THE EVENING)
     Route: 048
  2. PRAVASTATIN SODIUM [Suspect]
     Indication: HYPERCHOLESTEROLAEMIA
     Dosage: 20 MG, 1X/DAY
     Route: 048
     Dates: end: 20130719
  3. LOSARTAN POTASSIUM [Suspect]
     Indication: HYPERTENSION
     Dosage: 100 MG, 1X/DAY
     Route: 048
     Dates: end: 20130719
  4. LEVOTHYROX [Suspect]
     Indication: SECONDARY HYPOTHYROIDISM
     Dosage: 1 DF, 1X/DAY
     Route: 048
  5. CACIT VITAMINE D3 [Suspect]
     Indication: HYPOCALCAEMIA
     Dosage: 1 DF, 3X/DAY  (1 TABLET IN THE MORNING, AT NOON AND IN THE EVENING)
     Route: 048

REACTIONS (2)
  - Hyperthyroidism [Recovered/Resolved]
  - Hyponatraemia [Recovering/Resolving]
